FAERS Safety Report 5502568-0 (Version None)
Quarter: 2007Q4

REPORT INFORMATION
  Report Type: 
  Country: None (occurrence: None)
  Receive Date: 20071031
  Receipt Date: 20071029
  Transmission Date: 20080405
  Serious: Yes (Hospitalization)
  Sender: FDA-Public Use
  Company Number: JP-SP-2007-03663

PATIENT
  Age: 76 Year
  Sex: Male

DRUGS (2)
  1. IMMUCYST [Suspect]
     Indication: BLADDER CANCER
     Route: 043
     Dates: start: 20070315, end: 20070315
  2. MITOMYCIN [Concomitant]
     Route: 043
     Dates: start: 20070313

REACTIONS (4)
  - BLOOD UREA INCREASED [None]
  - PROSTATITIS [None]
  - PYELONEPHRITIS [None]
  - WHITE BLOOD CELL COUNT INCREASED [None]
